FAERS Safety Report 7522131-X (Version None)
Quarter: 2011Q2

REPORT INFORMATION
  Report Type: 
  Country: None (occurrence: None)
  Receive Date: 20110603
  Receipt Date: 20110527
  Transmission Date: 20111010
  Serious: Yes (Hospitalization)
  Sender: FDA-Public Use
  Company Number: ZA-SANOFI-AVENTIS-2011SA030338

PATIENT
  Age: 69 Year
  Sex: Male
  Weight: 72 kg

DRUGS (12)
  1. BETAMETHASONE [Concomitant]
     Route: 048
     Dates: start: 20101115
  2. TAMSULOSIN HYDROCHLORIDE [Concomitant]
     Indication: MICTURITION DISORDER
     Route: 048
     Dates: start: 20101012
  3. OMEPRAZOLE [Concomitant]
     Indication: GASTRIC ULCER
     Route: 048
     Dates: start: 20101025
  4. PREDNISONE [Suspect]
     Route: 065
     Dates: start: 20101116, end: 20101121
  5. BETAMETHASONE [Concomitant]
     Indication: PREMEDICATION
     Route: 048
     Dates: start: 20100920
  6. BLINDED THERAPY [Suspect]
     Indication: PROSTATE CANCER
     Route: 048
     Dates: start: 20100921
  7. BLINDED THERAPY [Suspect]
     Route: 048
     Dates: start: 20101116, end: 20101120
  8. ZOFRAN [Concomitant]
     Route: 048
     Dates: start: 20101116, end: 20101118
  9. OMEPRAZOLE [Concomitant]
     Route: 048
     Dates: start: 20101025
  10. DOCETAXEL [Suspect]
     Indication: PROSTATE CANCER
     Route: 042
     Dates: start: 20100921, end: 20100921
  11. PREDNISONE [Suspect]
     Indication: PROSTATE CANCER
     Route: 065
     Dates: start: 20100921
  12. DOCETAXEL [Suspect]
     Route: 042
     Dates: start: 20101116, end: 20101116

REACTIONS (1)
  - CEREBROVASCULAR ACCIDENT [None]
